FAERS Safety Report 18066768 (Version 2)
Quarter: 2020Q3

REPORT INFORMATION
  Report Type: Spontaneous
  Country: US (occurrence: US)
  Receive Date: 20200724
  Receipt Date: 20200730
  Transmission Date: 20201103
  Serious: No
  Sender: FDA-Public Use
  Company Number: US-PFIZER INC-2020273858

PATIENT
  Age: 69 Year
  Sex: Female
  Weight: 59.87 kg

DRUGS (4)
  1. EUCRISA [Suspect]
     Active Substance: CRISABOROLE
     Indication: DERMATITIS CONTACT
     Dosage: UNK, 1X/DAY (IN THE MORNING)
     Dates: start: 20200706
  2. EUCRISA [Suspect]
     Active Substance: CRISABOROLE
     Indication: ECZEMA
     Dosage: UNK, AS NEEDED (60?G TUBE, USE BID(TWICE A DAY) PRN(AS NEEDED) FOR FACIAL ECZEMA)
  3. FLUTICASONE PROPIONATE. [Concomitant]
     Active Substance: FLUTICASONE PROPIONATE
     Dosage: UNK, 1X/DAY (AT NIGHT)
  4. EUCRISA [Suspect]
     Active Substance: CRISABOROLE
     Dosage: UNK, 2X/DAY (NIGHT AND DAY)
     Dates: end: 202007

REACTIONS (4)
  - Drug ineffective [Unknown]
  - Eczema [Unknown]
  - Lip pain [Unknown]
  - Condition aggravated [Unknown]

NARRATIVE: CASE EVENT DATE: 202007
